FAERS Safety Report 8397688 (Version 4)
Quarter: 2013Q1

REPORT INFORMATION
  Report Type: Spontaneous
  Country: JP (occurrence: JP)
  Receive Date: 20120209
  Receipt Date: 20130118
  Transmission Date: 20140127
  Serious: Yes (Death)
  Sender: FDA-Public Use
  Company Number: JP-ROCHE-1037971

PATIENT
  Age: 78 Year
  Sex: Female

DRUGS (21)
  1. RITUXIMAB [Suspect]
     Indication: DIFFUSE LARGE B-CELL LYMPHOMA
     Route: 065
     Dates: start: 20070214
  2. CYCLOPHOSPHAMIDE [Suspect]
     Indication: DIFFUSE LARGE B-CELL LYMPHOMA
     Route: 065
  3. VINCRISTINE [Suspect]
     Indication: DIFFUSE LARGE B-CELL LYMPHOMA
     Route: 065
  4. DOXORUBICIN [Suspect]
     Indication: DIFFUSE LARGE B-CELL LYMPHOMA
     Route: 065
  5. PREDNISOLONE [Suspect]
     Indication: DIFFUSE LARGE B-CELL LYMPHOMA
     Dosage: DAY 1-5
     Route: 065
  6. LOBU [Concomitant]
     Route: 065
     Dates: start: 20070214, end: 20070530
  7. LOBU [Concomitant]
     Route: 065
     Dates: start: 20061003
  8. ALESION [Concomitant]
     Route: 065
     Dates: start: 20070214, end: 20070530
  9. ZOFRAN [Concomitant]
     Route: 065
     Dates: start: 20070214, end: 20070530
  10. ADRIACIN [Concomitant]
     Route: 065
     Dates: start: 20070214, end: 20070530
  11. ONCOVIN [Concomitant]
     Route: 065
     Dates: start: 20070214, end: 20070530
  12. ENDOXAN [Concomitant]
     Route: 065
     Dates: start: 20070214, end: 20070530
  13. PREDONINE [Concomitant]
     Route: 065
     Dates: start: 20070214, end: 20070530
  14. BLOPRESS [Concomitant]
     Route: 065
     Dates: start: 20060712
  15. RIZABEN [Concomitant]
     Route: 065
     Dates: start: 20070327
  16. THYRADIN [Concomitant]
     Route: 065
     Dates: start: 20061016
  17. FLUITRAN [Concomitant]
     Route: 065
     Dates: start: 20061030
  18. SENNOSIDE [Concomitant]
     Route: 065
     Dates: start: 20061113
  19. LENDORMIN [Concomitant]
     Route: 065
     Dates: start: 20070130
  20. BENET [Concomitant]
     Route: 065
     Dates: start: 20070327
  21. URSO [Concomitant]
     Route: 065
     Dates: start: 20070327

REACTIONS (1)
  - Small intestinal ulcer haemorrhage [Fatal]
